FAERS Safety Report 4535207-6 (Version None)
Quarter: 2004Q4

REPORT INFORMATION
  Report Type: 
  Country: None (occurrence: None)
  Receive Date: 20041214
  Receipt Date: 20040827
  Transmission Date: 20050328
  Serious: No
  Sender: FDA-Public Use
  Company Number: 2004224450US

PATIENT
  Sex: Female

DRUGS (2)
  1. BEXTRA [Suspect]
     Indication: POST PROCEDURAL PAIN
     Dosage: 20 MG, BID
  2. LORTAB [Concomitant]

REACTIONS (1)
  - ECCHYMOSIS [None]
